FAERS Safety Report 25726027 (Version 1)
Quarter: 2025Q3

REPORT INFORMATION
  Report Type: Spontaneous
  Country: US (occurrence: US)
  Receive Date: 20250826
  Receipt Date: 20250826
  Transmission Date: 20251021
  Serious: Yes (Other)
  Sender: DR REDDYS
  Company Number: US-DRL-USA-USA/2025/08/012794

PATIENT
  Age: 36 Year
  Sex: Male

DRUGS (2)
  1. TOPIRAMATE [Suspect]
     Active Substance: TOPIRAMATE
     Indication: Cluster headache
  2. VALPROIC ACID [Suspect]
     Active Substance: VALPROIC ACID
     Indication: Cluster headache

REACTIONS (3)
  - Nephrolithiasis [Unknown]
  - Drug ineffective [Unknown]
  - Product use in unapproved indication [Unknown]
